FAERS Safety Report 14984560 (Version 1)
Quarter: 2018Q2

REPORT INFORMATION
  Report Type: Spontaneous
  Country: None (occurrence: US)
  Receive Date: 20180607
  Receipt Date: 20180607
  Transmission Date: 20180711
  Serious: Yes (Other)
  Sender: FDA-Public Use
  Company Number: US-MEDAC PHARMA, INC.-2049119

PATIENT
  Sex: Female

DRUGS (4)
  1. ORENCIA [Suspect]
     Active Substance: ABATACEPT
  2. RASUVO [Suspect]
     Active Substance: METHOTREXATE SODIUM
     Route: 058
  3. OTREXUP [Suspect]
     Active Substance: METHOTREXATE
     Route: 058
  4. ENBREL [Suspect]
     Active Substance: ETANERCEPT

REACTIONS (11)
  - Spinal pain [Unknown]
  - Pain in extremity [Unknown]
  - Musculoskeletal stiffness [Unknown]
  - Joint stiffness [Unknown]
  - Joint swelling [Unknown]
  - Arthralgia [Unknown]
  - Loss of personal independence in daily activities [Unknown]
  - Drug effect incomplete [Unknown]
  - Musculoskeletal pain [Unknown]
  - Oral surgery [Unknown]
  - Urinary tract infection [Unknown]
